FAERS Safety Report 10146925 (Version 1)
Quarter: 2014Q2

REPORT INFORMATION
  Report Type: Spontaneous
  Country: FR (occurrence: FR)
  Receive Date: 20140501
  Receipt Date: 20140501
  Transmission Date: 20141212
  Serious: Yes (Hospitalization)
  Sender: FDA-Public Use
  Company Number: FR-PFIZER INC-2014118496

PATIENT
  Age: 74 Year
  Sex: Male

DRUGS (11)
  1. TAHOR [Suspect]
     Dosage: 40 MG, DAILY
     Route: 048
     Dates: start: 20140305, end: 20140410
  2. CRESTOR [Suspect]
     Dosage: 10 MG, DAILY
     Route: 048
     Dates: end: 20140305
  3. KARDEGIC [Concomitant]
     Dosage: 75 MG, DAILY
  4. ADANCOR [Concomitant]
     Dosage: 1 DF, DAILY
  5. EXFORGE [Concomitant]
     Dosage: 1 DF, DAILY
  6. PROCORALAN [Concomitant]
     Dosage: 7.5 MG, DAILY
  7. ALLOPURINOL [Concomitant]
     Dosage: 200 MG, DAILY
  8. IMOVANE [Concomitant]
     Dosage: 7.5 MG, DAILY
  9. PIASCLEDINE [Concomitant]
     Dosage: 300 MG, DAILY
  10. TRAMADOL [Concomitant]
     Dosage: 300 MG, DAILY
     Dates: start: 201402
  11. FRAGMIN [Concomitant]
     Dosage: 5000 IU, DAILY
     Dates: start: 20140213, end: 20140407

REACTIONS (1)
  - Muscle rupture [Not Recovered/Not Resolved]
